FAERS Safety Report 18428010 (Version 1)
Quarter: 2020Q4

REPORT INFORMATION
  Report Type: Report from Study
  Country: IR (occurrence: IR)
  Receive Date: 20201026
  Receipt Date: 20201026
  Transmission Date: 20210114
  Serious: No
  Sender: FDA-Public Use
  Company Number: IR-LARKEN LABORATORIES, INC.-2093120

PATIENT
  Age: 32 Year
  Sex: Female
  Weight: 63.64 kg

DRUGS (1)
  1. DEXAMETHASONE 1.5 MG TABLET [Suspect]
     Active Substance: DEXAMETHASONE
     Indication: ACUTE LYMPHOCYTIC LEUKAEMIA

REACTIONS (1)
  - Inhibitory drug interaction [Recovered/Resolved]
